FAERS Safety Report 13073787 (Version 1)
Quarter: 2016Q4

REPORT INFORMATION
  Report Type: Spontaneous
  Country: GB (occurrence: GB)
  Receive Date: 20161229
  Receipt Date: 20161229
  Transmission Date: 20170207
  Serious: Yes (Other)
  Sender: FDA-Public Use
  Company Number: GB-PFIZER INC-2016600246

PATIENT
  Age: 18 Year
  Sex: Female
  Weight: 55 kg

DRUGS (4)
  1. VANCOMYCIN HCL [Suspect]
     Active Substance: VANCOMYCIN HYDROCHLORIDE
     Indication: ABDOMINAL INFECTION
     Dosage: 1250 MG, UNK
     Route: 042
     Dates: start: 20161208, end: 20161209
  2. VANCOMYCIN HCL [Suspect]
     Active Substance: VANCOMYCIN HYDROCHLORIDE
     Dosage: 1000 MG, UNK (LOADING DOSE)
     Route: 042
     Dates: start: 20161208, end: 20161208
  3. SERTRALINE [Concomitant]
     Active Substance: SERTRALINE HYDROCHLORIDE
     Dosage: UNK
  4. NORETHISTERONE [Concomitant]
     Active Substance: NORETHINDRONE
     Dosage: UNK

REACTIONS (5)
  - Swelling face [Unknown]
  - Ocular hyperaemia [Recovered/Resolved]
  - Injection site pruritus [Unknown]
  - Eye swelling [Recovered/Resolved]
  - Administration site rash [Recovered/Resolved]

NARRATIVE: CASE EVENT DATE: 20161208
